FAERS Safety Report 4662795-1 (Version None)
Quarter: 2005Q2

REPORT INFORMATION
  Report Type: 
  Country: None (occurrence: None)
  Receive Date: 20050512
  Receipt Date: 20050422
  Transmission Date: 20051028
  Serious: Yes (Other)
  Sender: FDA-Public Use
  Company Number: GBS050417235

PATIENT
  Age: 41 Year
  Sex: Female

DRUGS (10)
  1. OLANZAPINE [Suspect]
     Dosage: 1 DSG FORM IN THE EVENING
  2. XENICAL [Concomitant]
  3. AMISULPRIDE [Concomitant]
  4. ACAMPROSTATE [Concomitant]
  5. DISULFIRAM [Concomitant]
  6. ZOPICLONE [Concomitant]
  7. VALPROATE SODIUM [Concomitant]
  8. THIAMINE [Concomitant]
  9. VITAMIN B COMPLEX CAP [Concomitant]
  10. TRAZODONE [Concomitant]

REACTIONS (3)
  - CONDITION AGGRAVATED [None]
  - DRUG INTERACTION [None]
  - PSYCHOTIC DISORDER [None]
